FAERS Safety Report 4648845-7 (Version None)
Quarter: 2005Q2

REPORT INFORMATION
  Report Type: 
  Country: None (occurrence: None)
  Receive Date: 20050427
  Receipt Date: 20050317
  Transmission Date: 20051028
  Serious: Yes (Hospitalization)
  Sender: FDA-Public Use
  Company Number: 141922USA

PATIENT
  Age: 59 Year
  Sex: Male
  Weight: 84.369 kg

DRUGS (11)
  1. ADRUCIL [Suspect]
     Indication: ADENOCARCINOMA PANCREAS
     Dates: start: 20040927, end: 20041015
  2. ADRUCIL [Suspect]
     Indication: ADENOCARCINOMA PANCREAS
     Dates: start: 20041016
  3. CISPLATIN [Suspect]
     Indication: ADENOCARCINOMA PANCREAS
     Dates: start: 20040927, end: 20041011
  4. CISPLATIN [Suspect]
     Indication: ADENOCARCINOMA PANCREAS
     Dates: start: 20041012
  5. INTRON A [Suspect]
     Dates: start: 20041016
  6. INTRON A [Suspect]
     Dates: start: 20040927, end: 20041015
  7. NORTRIPTYLINE HCL [Concomitant]
  8. WARFARIN [Concomitant]
  9. LOPERAMIDE HCL [Concomitant]
  10. ESOMEPRAZOLE [Concomitant]
  11. CEPHALEXIN/BROMHEXINE [Concomitant]

REACTIONS (2)
  - MUCOSAL INFLAMMATION [None]
  - PYREXIA [None]
